FAERS Safety Report 19927449 (Version 3)
Quarter: 2022Q2

REPORT INFORMATION
  Report Type: Spontaneous
  Country: US (occurrence: US)
  Receive Date: 20211007
  Receipt Date: 20220620
  Transmission Date: 20220721
  Serious: Yes (Other)
  Sender: FDA-Public Use
  Company Number: US-NOVOPROD-853318

PATIENT
  Sex: Female
  Weight: 77.098 kg

DRUGS (2)
  1. LEVEMIR [Suspect]
     Active Substance: INSULIN DETEMIR
     Indication: Type 2 diabetes mellitus
     Dosage: 35 IU, QD (AT BEDTIME)
     Route: 058
  2. LEVEMIR [Suspect]
     Active Substance: INSULIN DETEMIR
     Dosage: UNK
     Route: 058

REACTIONS (2)
  - Chronic obstructive pulmonary disease [Unknown]
  - Cardiac disorder [Not Recovered/Not Resolved]
